FAERS Safety Report 5216886-7 (Version None)
Quarter: 2007Q1

REPORT INFORMATION
  Report Type: 
  Country: None (occurrence: None)
  Receive Date: 20070119
  Receipt Date: 20070110
  Transmission Date: 20070707
  Serious: Yes (Hospitalization, Other)
  Sender: FDA-Public Use
  Company Number: DAV-AE-NAP-06-001

PATIENT
  Age: 65 Year
  Sex: Male

DRUGS (11)
  1. NAPROXEN [Suspect]
     Indication: JOINT SWELLING
     Dosage: 500MG - BID - ORAL
     Route: 048
  2. APIDRA [Suspect]
     Indication: DIABETES MELLITUS
     Dosage: 9-15 UNITS UD
     Dates: start: 20060701, end: 20060903
  3. APIDRA [Suspect]
     Indication: DIABETES MELLITUS
     Dosage: 9-15 UNITS UD
     Dates: start: 20060901
  4. LEVEMIR INJECTION [Concomitant]
  5. COREG [Concomitant]
  6. INSPIRA [Concomitant]
  7. LISINOPRIL [Concomitant]
  8. WARFARIN SODIUM [Concomitant]
  9. FUROSEMIDE [Concomitant]
  10. GLYBURIDE [Concomitant]
  11. LIPITOR [Concomitant]

REACTIONS (6)
  - BLOOD GLUCOSE DECREASED [None]
  - DIABETIC COMA [None]
  - DRUG INTERACTION [None]
  - HEAD INJURY [None]
  - JOINT SWELLING [None]
  - SKIN LACERATION [None]
